FAERS Safety Report 7398993-6 (Version None)
Quarter: 2011Q1

REPORT INFORMATION
  Report Type: 
  Country: None (occurrence: None)
  Receive Date: 20110328
  Receipt Date: 20110311
  Transmission Date: 20110831
  Serious: Yes (Other)
  Sender: FDA-Public Use
  Company Number: 027200

PATIENT
  Sex: Female

DRUGS (1)
  1. CIMZIA [Suspect]
     Indication: CROHN'S DISEASE
     Dosage: (200 MG 1X/2 WEEKS SUBCUTANEOUS)
     Route: 058
     Dates: start: 20100723

REACTIONS (9)
  - SKIN EXFOLIATION [None]
  - PRURITUS [None]
  - FREQUENT BOWEL MOVEMENTS [None]
  - ORAL CANDIDIASIS [None]
  - NAUSEA [None]
  - FATIGUE [None]
  - RECTAL ABSCESS [None]
  - DRY SKIN [None]
  - ASTHENIA [None]
